FAERS Safety Report 12707900 (Version 1)
Quarter: 2016Q3

REPORT INFORMATION
  Report Type: Report from Study
  Country: IT (occurrence: IT)
  Receive Date: 20160901
  Receipt Date: 20160901
  Transmission Date: 20161109
  Serious: Yes (Hospitalization)
  Sender: FDA-Public Use
  Company Number: IT-BAXALTA-2016BLT006287

PATIENT
  Age: 21 Year
  Sex: Female

DRUGS (8)
  1. VINCRISTINE [Suspect]
     Active Substance: VINCRISTINE
     Indication: ACUTE LYMPHOCYTIC LEUKAEMIA
     Dosage: 3.8 MG, UNK
     Route: 042
     Dates: start: 20160802
  2. ONCASPAR [Suspect]
     Active Substance: PEGASPARGASE
     Indication: ACUTE LYMPHOCYTIC LEUKAEMIA
     Dosage: 2700 U, UNK
     Route: 042
     Dates: start: 20160811
  3. MERCAPTOPURINE. [Suspect]
     Active Substance: MERCAPTOPURINE
     Indication: ACUTE LYMPHOCYTIC LEUKAEMIA
     Dosage: 800 MG, UNK
     Route: 048
     Dates: start: 20160802, end: 20160811
  4. IDARUBICIN [Suspect]
     Active Substance: IDARUBICIN
     Indication: ACUTE LYMPHOCYTIC LEUKAEMIA
     Dosage: 16 MG, UNK
     Route: 042
     Dates: start: 20160802
  5. CYCLOPHOSPHAMIDE. [Suspect]
     Active Substance: CYCLOPHOSPHAMIDE
     Indication: ACUTE LYMPHOCYTIC LEUKAEMIA
     Dosage: 1350 MG, UNK
     Route: 042
     Dates: start: 20160802
  6. VINCRISTINE [Suspect]
     Active Substance: VINCRISTINE
     Dosage: 3.8 MG, UNK
     Route: 042
     Dates: start: 20160809
  7. CYTARABINE. [Suspect]
     Active Substance: CYTARABINE
     Indication: ACUTE LYMPHOCYTIC LEUKAEMIA
     Dosage: 400 MG, UNK
     Route: 058
     Dates: start: 20160803, end: 20160806
  8. DEXAMETHASONE. [Suspect]
     Active Substance: DEXAMETHASONE
     Indication: ACUTE LYMPHOCYTIC LEUKAEMIA
     Dosage: 70 MG, UNK
     Route: 042
     Dates: start: 20160802, end: 20160806

REACTIONS (1)
  - Febrile neutropenia [Recovered/Resolved]

NARRATIVE: CASE EVENT DATE: 20160817
